FAERS Safety Report 10063312 (Version 2)
Quarter: 2014Q2

REPORT INFORMATION
  Report Type: Report from Study
  Country: GB (occurrence: GB)
  Receive Date: 20140407
  Receipt Date: 20140407
  Transmission Date: 20141212
  Serious: Yes (Other)
  Sender: FDA-Public Use
  Company Number: GB-NAPPMUNDI-GBR-2014-0017553

PATIENT
  Sex: Female

DRUGS (4)
  1. OXYNORM CAPSULES [Suspect]
     Indication: PAIN
     Dosage: 10 MG, UNK
     Route: 048
  2. OXYCODONE [Suspect]
     Indication: PAIN
     Dosage: UNK
     Route: 048
  3. ZYDOL XL [Suspect]
     Indication: PAIN
     Dosage: UNK
     Route: 048
  4. THYROXINE [Concomitant]
     Dosage: 100 MCG, DAILY

REACTIONS (6)
  - Pallor [Unknown]
  - Cold sweat [Unknown]
  - Abdominal pain [Recovered/Resolved]
  - Diarrhoea [Recovered/Resolved]
  - Constipation [Unknown]
  - Vomiting [Unknown]
